FAERS Safety Report 4568444-5 (Version None)
Quarter: 2005Q1

REPORT INFORMATION
  Report Type: 
  Country: None (occurrence: None)
  Receive Date: 20050131
  Receipt Date: 20050117
  Transmission Date: 20050727
  Serious: Yes (Hospitalization)
  Sender: FDA-Public Use
  Company Number: 2005AC00011

PATIENT
  Sex: Female

DRUGS (7)
  1. TENORMIN [Suspect]
     Dosage: 25 MG DAILY PO
     Route: 048
  2. MINIRIN [Suspect]
     Indication: NOCTURIA
     Dosage: 200 UG DAILY
  3. ACTONEL [Concomitant]
  4. ALDACTONE [Concomitant]
  5. DEVARON [Concomitant]
  6. COVERSYL [Concomitant]
  7. CALCICHEW [Concomitant]

REACTIONS (8)
  - AMNESIA [None]
  - BRADYCARDIA [None]
  - CIRCULATORY COLLAPSE [None]
  - CONTUSION [None]
  - HYPONATRAEMIA [None]
  - NOCTURIA [None]
  - SYNCOPE [None]
  - URINARY TRACT INFECTION [None]
